FAERS Safety Report 18746417 (Version 2)
Quarter: 2021Q1

REPORT INFORMATION
  Report Type: Spontaneous
  Country: US (occurrence: US)
  Receive Date: 20210115
  Receipt Date: 20210209
  Transmission Date: 20210419
  Serious: Yes (Other)
  Sender: FDA-Public Use
  Company Number: NVSC2021US006608

PATIENT
  Age: 8 Year
  Sex: Male
  Weight: 32 kg

DRUGS (5)
  1. KYMRIAH [Suspect]
     Active Substance: TISAGENLECLEUCEL
     Indication: ACUTE LYMPHOCYTIC LEUKAEMIA
     Dosage: 1.7E6 CAR?POSITIVE VIABLE T CELLS/KG BODY WEIGHT, 2 DOSES INFUSED
     Route: 042
     Dates: start: 20210104
  2. KYMRIAH [Suspect]
     Active Substance: TISAGENLECLEUCEL
     Indication: ACUTE LYMPHOCYTIC LEUKAEMIA REFRACTORY
     Dosage: 1.7E6 CAR POS (ONE SINGLE DOSE)
     Route: 042
     Dates: start: 20210111
  3. TOBRAMYCIN. [Concomitant]
     Active Substance: TOBRAMYCIN
     Indication: FEBRILE NEUTROPENIA
     Dosage: 6 MG/KG, QD
     Route: 042
     Dates: start: 20210108, end: 20210110
  4. MICAFUNGIN. [Concomitant]
     Active Substance: MICAFUNGIN SODIUM
     Indication: FEBRILE NEUTROPENIA
     Dosage: 3 MG/KG
     Route: 042
     Dates: start: 20210105
  5. CEFEPIME [Concomitant]
     Active Substance: CEFEPIME HYDROCHLORIDE
     Indication: FEBRILE NEUTROPENIA
     Dosage: 500 MG, Q8H
     Route: 042
     Dates: start: 20210105

REACTIONS (6)
  - Hypotension [Unknown]
  - Confusional state [Unknown]
  - Cytokine release syndrome [Unknown]
  - Pyrexia [Recovering/Resolving]
  - Neurotoxicity [Unknown]
  - Hypotension [Recovered/Resolved]

NARRATIVE: CASE EVENT DATE: 20210105
